FAERS Safety Report 15208469 (Version 1)
Quarter: 2018Q3

REPORT INFORMATION
  Report Type: Spontaneous
  Country: US (occurrence: US)
  Receive Date: 20180727
  Receipt Date: 20180727
  Transmission Date: 20181010
  Serious: No
  Sender: FDA-Public Use
  Company Number: US-009507513-1807USA000687

PATIENT
  Sex: Male

DRUGS (1)
  1. ASMANEX [Suspect]
     Active Substance: MOMETASONE FUROATE
     Dosage: ONE PUFF ONCE DAILY AT NIGHT
     Route: 055

REACTIONS (3)
  - Dyspnoea [Recovered/Resolved]
  - Product quality issue [Recovered/Resolved]
  - Drug dose omission [Unknown]
